FAERS Safety Report 24419692 (Version 1)
Quarter: 2024Q4

REPORT INFORMATION
  Report Type: Spontaneous
  Country: US (occurrence: US)
  Receive Date: 20241010
  Receipt Date: 20241010
  Transmission Date: 20250115
  Serious: No
  Sender: APOTEX
  Company Number: US-APOTEX-2024AP011740

PATIENT
  Age: 34 Year
  Sex: Female

DRUGS (2)
  1. TAMOXIFEN [Suspect]
     Active Substance: TAMOXIFEN
     Indication: Therapeutic ovarian suppression
     Dosage: UNK
     Route: 065
  2. LEUPROLIDE ACETATE [Concomitant]
     Active Substance: LEUPROLIDE ACETATE
     Indication: Therapeutic ovarian suppression
     Dosage: UNK, Q.M.T.
     Route: 065

REACTIONS (1)
  - Drug intolerance [Unknown]
